FAERS Safety Report 8347879-9 (Version None)
Quarter: 2012Q2

REPORT INFORMATION
  Report Type: 
  Country: None (occurrence: None)
  Receive Date: 20120509
  Receipt Date: 20120426
  Transmission Date: 20120825
  Serious: Yes (Hospitalization, Other)
  Sender: FDA-Public Use
  Company Number: US-ELI_LILLY_AND_COMPANY-US201105004776

PATIENT
  Sex: Female

DRUGS (16)
  1. TYLENOL                                 /SCH/ [Concomitant]
     Dosage: UNK, PRN
  2. FORTEO [Suspect]
     Dosage: 20 UG, QD
  3. FORTEO [Suspect]
     Dosage: 20 UG, QD
  4. FLUOXETINE [Concomitant]
     Dosage: 10 MG, UNK
  5. MULTI-VITAMINS [Concomitant]
  6. LEVOTHYROXINE SODIUM [Concomitant]
     Dosage: 50 MG, UNK
  7. OMEPRAZOLE [Concomitant]
     Dosage: 25 MG, UNK
  8. LOVASTATIN [Concomitant]
     Dosage: 20 MG, QD IN EVENING
  9. ASPIRIN [Concomitant]
     Dosage: 81 MG, UNK
  10. FORTEO [Suspect]
     Dosage: 20 UG, QD
     Dates: start: 20120425
  11. OXYBUTYNIN [Concomitant]
     Dosage: 5 MG, UNK
  12. CALCIUM+VIT D                      /00944201/ [Concomitant]
     Dosage: UNK, QD
  13. FORTEO [Suspect]
     Indication: OSTEOPOROSIS
     Dosage: 20 UG, QD
     Dates: start: 20100709
  14. FORTEO [Suspect]
     Dosage: 20 UG, QD
  15. FORTEO [Suspect]
     Dosage: 20 UG, QD
     Dates: end: 20120413
  16. FISH OIL [Concomitant]

REACTIONS (8)
  - FALL [None]
  - DIZZINESS [None]
  - APHONIA [None]
  - FEMUR FRACTURE [None]
  - ARTHRITIS [None]
  - FINGER DEFORMITY [None]
  - EYE DISORDER [None]
  - DENTAL PLAQUE [None]
